FAERS Safety Report 5489756-7 (Version None)
Quarter: 2007Q4

REPORT INFORMATION
  Report Type: 
  Country: None (occurrence: None)
  Receive Date: 20071018
  Receipt Date: 20070518
  Transmission Date: 20080405
  Serious: Yes (Hospitalization, Other)
  Sender: FDA-Public Use
  Company Number: US-ASTRAZENECA-2007UW12533

PATIENT
  Age: 56 Year
  Sex: Male

DRUGS (2)
  1. MERREM [Suspect]
     Route: 042
  2. VANCOMYCIN [Concomitant]

REACTIONS (1)
  - DRUG ERUPTION [None]
